FAERS Safety Report 9352531 (Version 1)
Quarter: 2013Q2

REPORT INFORMATION
  Report Type: Spontaneous
  Country: TW (occurrence: TW)
  Receive Date: 20130618
  Receipt Date: 20130618
  Transmission Date: 20140414
  Serious: Yes (Life-Threatening)
  Sender: FDA-Public Use
  Company Number: TW-BRISTOL-MYERS SQUIBB COMPANY-19013762

PATIENT
  Age: 74 Year
  Sex: Male

DRUGS (3)
  1. MITOMYCIN-C [Suspect]
     Route: 042
  2. CISPLATIN [Suspect]
  3. 5-FLUOROURACIL [Suspect]

REACTIONS (5)
  - Septic shock [Unknown]
  - Diarrhoea haemorrhagic [Unknown]
  - Electrolyte imbalance [Unknown]
  - Nausea [Unknown]
  - Vomiting [Unknown]
